FAERS Safety Report 9169194 (Version 2)
Quarter: 2013Q2

REPORT INFORMATION
  Report Type: Spontaneous
  Country: US (occurrence: US)
  Receive Date: 20130318
  Receipt Date: 20130510
  Transmission Date: 20140414
  Serious: Yes (Hospitalization)
  Sender: FDA-Public Use
  Company Number: US-B.I. PHARMACEUTICALS,INC./RIDGEFIELD-2013-BI-06643BP

PATIENT
  Age: 80 Year
  Sex: Female
  Weight: 81.65 kg

DRUGS (8)
  1. PRADAXA [Suspect]
     Indication: ATRIAL FIBRILLATION
     Dosage: 300 MG
     Route: 048
     Dates: start: 20110812, end: 20120315
  2. JANUMET [Concomitant]
     Route: 048
  3. PRAVASTATIN [Concomitant]
     Dosage: 40 MG
     Route: 048
  4. DILTIAZEM [Concomitant]
     Dosage: 360 MG
     Route: 048
  5. POTASSIUM [Concomitant]
     Dosage: 20 MEQ
     Route: 048
  6. LASIX [Concomitant]
     Dosage: 20 MG
     Route: 048
  7. PREMARIN [Concomitant]
     Dosage: 0.625 MG
     Route: 048
  8. RYTHMOL [Concomitant]
     Dosage: 675 MG
     Route: 048

REACTIONS (2)
  - Haemorrhage [Unknown]
  - Haematuria [Unknown]
